FAERS Safety Report 7738141-3 (Version None)
Quarter: 2011Q3

REPORT INFORMATION
  Report Type: 
  Country: None (occurrence: None)
  Receive Date: 20110908
  Receipt Date: 20110824
  Transmission Date: 20111222
  Serious: Yes (Other)
  Sender: FDA-Public Use
  Company Number: HR-BAYER-2011-076520

PATIENT
  Sex: Female

DRUGS (3)
  1. ASPIRIN [Suspect]
     Dosage: UNK
     Dates: start: 20100701
  2. NEXIUM [Suspect]
     Dosage: DAILY DOSE 80 MG/24HR
     Route: 048
     Dates: start: 20101201, end: 20110330
  3. VENTER [Concomitant]
     Dosage: UNK
     Dates: start: 20110330

REACTIONS (3)
  - DRUG INEFFECTIVE [None]
  - HELICOBACTER GASTRITIS [None]
  - OESOPHAGITIS [None]
